FAERS Safety Report 5147540-8 (Version None)
Quarter: 2006Q4

REPORT INFORMATION
  Report Type: 
  Country: None (occurrence: None)
  Receive Date: 20061109
  Receipt Date: 20061030
  Transmission Date: 20070319
  Serious: Yes (Other)
  Sender: FDA-Public Use
  Company Number: GB-ABBOTT-06P-167-0348727-00

PATIENT
  Sex: Female

DRUGS (1)
  1. KLARICID [Suspect]
     Indication: DRUG USE FOR UNKNOWN INDICATION
     Route: 048
     Dates: start: 20060714, end: 20060728

REACTIONS (2)
  - AGEUSIA [None]
  - ANOSMIA [None]
